FAERS Safety Report 10171937 (Version 1)
Quarter: 2014Q2

REPORT INFORMATION
  Report Type: Spontaneous
  Country: PE (occurrence: PE)
  Receive Date: 20140515
  Receipt Date: 20140515
  Transmission Date: 20141212
  Serious: Yes (Other)
  Sender: FDA-Public Use
  Company Number: PE-PFIZER INC-2014130813

PATIENT
  Age: 45 Year
  Sex: Female

DRUGS (1)
  1. LYRICA [Suspect]
     Indication: FIBROMYALGIA
     Dosage: 150 MG, 2X/DAY
     Route: 048
     Dates: start: 2009

REACTIONS (9)
  - Brain neoplasm [Unknown]
  - Vomiting [Recovered/Resolved]
  - Pain [Unknown]
  - Blood cortisol decreased [Unknown]
  - Myalgia [Unknown]
  - Swelling face [Unknown]
  - Peripheral swelling [Unknown]
  - Eye swelling [Unknown]
  - Memory impairment [Unknown]
